FAERS Safety Report 25377905 (Version 1)
Quarter: 2025Q2

REPORT INFORMATION
  Report Type: Spontaneous
  Country: US (occurrence: US)
  Receive Date: 20250530
  Receipt Date: 20250530
  Transmission Date: 20250717
  Serious: No
  Sender: Unknown Manufacturer
  Company Number: US-KALEO, INC.-2025KL000009

PATIENT
  Age: 12 Year
  Sex: Female

DRUGS (1)
  1. AUVI-Q [Suspect]
     Active Substance: EPINEPHRINE

REACTIONS (3)
  - Device audio issue [Not Recovered/Not Resolved]
  - Device optical issue [Not Recovered/Not Resolved]
  - Product deposit [Not Recovered/Not Resolved]
